FAERS Safety Report 21220272 (Version 1)
Quarter: 2022Q3

REPORT INFORMATION
  Report Type: Spontaneous
  Country: JP (occurrence: JP)
  Receive Date: 20220817
  Receipt Date: 20220817
  Transmission Date: 20221027
  Serious: Yes (Other)
  Sender: FDA-Public Use
  Company Number: JP-SUN PHARMACEUTICAL INDUSTRIES LTD-2022R1-348988

PATIENT
  Age: 50 Year
  Sex: Male
  Weight: 67 kg

DRUGS (2)
  1. CARBOPLATIN [Suspect]
     Active Substance: CARBOPLATIN
     Indication: Neoplasm skin
     Dosage: UNK
     Route: 065
  2. PACLITAXEL [Suspect]
     Active Substance: PACLITAXEL
     Indication: Neoplasm skin
     Dosage: UNK
     Route: 065

REACTIONS (4)
  - Neuropathy peripheral [Recovered/Resolved]
  - Malaise [Unknown]
  - Decreased appetite [Unknown]
  - Pollakiuria [Unknown]
